FAERS Safety Report 4874873-2 (Version None)
Quarter: 2006Q1

REPORT INFORMATION
  Report Type: 
  Country: None (occurrence: None)
  Receive Date: 20060104
  Receipt Date: 20050831
  Transmission Date: 20060701
  Serious: Yes (Hospitalization)
  Sender: FDA-Public Use
  Company Number: 2005172621

PATIENT
  Age: 85 Year
  Sex: Female

DRUGS (5)
  1. VIBRAMYCIN [Suspect]
     Indication: ILL-DEFINED DISORDER
     Dosage: 0.4 ORAL
     Route: 048
     Dates: start: 20050725
  2. METOCLOPRAMIDE [Suspect]
     Indication: VOMITING
     Dosage: ORAL
     Route: 048
     Dates: start: 20050727
  3. ALUMINUM HYDROXIDE AND MAGNESIUM TRISILICATE [Suspect]
     Indication: VOMITING
     Dosage: ORAL
     Route: 048
     Dates: start: 20050727
  4. AMOXICILLIN [Suspect]
     Indication: ILL-DEFINED DISORDER
     Dosage: ORAL
     Route: 048
     Dates: start: 20050725
  5. LOVENOX [Suspect]
     Indication: ILL-DEFINED DISORDER
     Dosage: SUBCUTANEOUS
     Route: 058
     Dates: start: 20050725

REACTIONS (6)
  - COGWHEEL RIGIDITY [None]
  - ERYSIPELAS [None]
  - EYE MOVEMENT DISORDER [None]
  - GAIT DISTURBANCE [None]
  - TREMOR [None]
  - VOMITING [None]
